FAERS Safety Report 11866314 (Version 1)
Quarter: 2015Q4

REPORT INFORMATION
  Report Type: Spontaneous
  Country: BE (occurrence: BE)
  Receive Date: 20151223
  Receipt Date: 20151223
  Transmission Date: 20160305
  Serious: Yes (Other)
  Sender: FDA-Public Use
  Company Number: BE-ROCHE-1680230

PATIENT
  Age: 37 Year
  Sex: Male
  Weight: 111 kg

DRUGS (1)
  1. CELLCEPT [Suspect]
     Active Substance: MYCOPHENOLATE MOFETIL\MYCOPHENOLATE MOFETIL HYDROCHLORIDE
     Indication: GRAFT VERSUS HOST DISEASE
     Route: 065
     Dates: start: 20151208

REACTIONS (6)
  - Hyperbilirubinaemia [Unknown]
  - Epstein-Barr virus infection [Unknown]
  - Hypocalcaemia [Unknown]
  - Transaminases increased [Unknown]
  - Malnutrition [Unknown]
  - Hypokalaemia [Unknown]

NARRATIVE: CASE EVENT DATE: 20151214
